FAERS Safety Report 16464955 (Version 1)
Quarter: 2019Q2

REPORT INFORMATION
  Report Type: Spontaneous
  Country: US (occurrence: US)
  Receive Date: 20190621
  Receipt Date: 20190621
  Transmission Date: 20190711
  Serious: No
  Sender: FDA-Public Use
  Company Number: US-PERRIGO-19US006825

PATIENT
  Age: 82 Year
  Sex: Female
  Weight: 54.42 kg

DRUGS (1)
  1. LOPERAMIDE-SIMETHICONE [Suspect]
     Active Substance: DIMETHICONE\LOPERAMIDE HYDROCHLORIDE
     Indication: DIARRHOEA
     Dosage: 1 TABLET AFTER 1ST EPISODE, 1/2 TABLET AFTER 2ND EPISODE
     Route: 048
     Dates: start: 20190529, end: 20190529

REACTIONS (7)
  - Flatulence [Not Recovered/Not Resolved]
  - Drug ineffective [Unknown]
  - Underdose [Recovered/Resolved]
  - Abdominal pain upper [Not Recovered/Not Resolved]
  - Condition aggravated [Not Recovered/Not Resolved]
  - Abdominal distension [Not Recovered/Not Resolved]
  - Abdominal discomfort [Not Recovered/Not Resolved]

NARRATIVE: CASE EVENT DATE: 20190529
